FAERS Safety Report 9294327 (Version 2)
Quarter: 2013Q2

REPORT INFORMATION
  Report Type: Report from Study
  Country: IT (occurrence: IT)
  Receive Date: 20130517
  Receipt Date: 20130627
  Transmission Date: 20140414
  Serious: Yes (Other)
  Sender: FDA-Public Use
  Company Number: IT-ROCHE-1222431

PATIENT
  Age: 63 Year
  Sex: Male

DRUGS (3)
  1. BEVACIZUMAB [Suspect]
     Indication: COLON CANCER
     Route: 042
     Dates: start: 20130213, end: 20130213
  2. OXALIPLATIN [Concomitant]
     Route: 042
     Dates: start: 20130211, end: 20130211
  3. FLUOROURACIL [Concomitant]
     Route: 042
     Dates: start: 20130211, end: 20130212

REACTIONS (2)
  - Mucosal inflammation [Recovered/Resolved]
  - Mucosal haemorrhage [Recovered/Resolved]
